FAERS Safety Report 21584245 (Version 1)
Quarter: 2022Q4

REPORT INFORMATION
  Report Type: Spontaneous
  Country: US (occurrence: US)
  Receive Date: 20221111
  Receipt Date: 20221111
  Transmission Date: 20230112
  Serious: No
  Sender: FDA-Public Use
  Company Number: US-GLAXOSMITHKLINE-USCH2022043090

PATIENT
  Age: 81 Year
  Sex: Male

DRUGS (1)
  1. FLONASE ALLERGY RELIEF [Suspect]
     Active Substance: FLUTICASONE PROPIONATE
     Indication: Upper-airway cough syndrome
     Dosage: UNK
     Dates: start: 20220925

REACTIONS (2)
  - Rhinorrhoea [Unknown]
  - Wrong technique in product usage process [Unknown]
